FAERS Safety Report 8366197-6 (Version None)
Quarter: 2012Q2

REPORT INFORMATION
  Report Type: 
  Country: None (occurrence: None)
  Receive Date: 20120517
  Receipt Date: 20120504
  Transmission Date: 20120825
  Serious: Yes (Hospitalization)
  Sender: FDA-Public Use
  Company Number: FR-VERTEX PHARMACEUTICALS INC.-000000000000000672

PATIENT
  Sex: Male
  Weight: 78 kg

DRUGS (11)
  1. TOCO [Concomitant]
     Indication: VITAMIN D DEFICIENCY
     Dates: start: 20110418
  2. LASIX [Concomitant]
     Indication: ASCITES
     Dates: start: 20110418
  3. POTASSIUM CHLORIDE [Concomitant]
     Indication: HYPOKALAEMIA
     Dates: start: 20110101
  4. PROPRANOLOL [Concomitant]
     Indication: HYPERTENSION
     Dates: start: 20090101
  5. ALLOPURINOL [Concomitant]
     Indication: HYPERURICAEMIA
     Dates: start: 19980101
  6. NEXIUM [Concomitant]
     Indication: DIARRHOEA
     Dates: start: 20091106
  7. INCIVO [Suspect]
     Indication: HEPATITIS C
     Dosage: DOSAGE FORM: TABLET
     Route: 048
     Dates: start: 20120329, end: 20120426
  8. MODURETIC 5-50 [Concomitant]
     Indication: DIURETIC THERAPY
     Dosage: 5 MG/50 MG TWICE A DAY
     Dates: start: 20090101
  9. ALFUZOSIN HCL [Concomitant]
     Indication: BENIGN PROSTATIC HYPERPLASIA
     Dates: start: 19980101
  10. PEGASYS [Concomitant]
     Indication: HEPATITIS C
     Dosage: DOSAGE FORM: UNSPECIFIED
     Route: 065
     Dates: start: 20120329, end: 20120426
  11. COPEGUS [Concomitant]
     Indication: HEPATITIS C
     Dosage: DOSAGE FORM: UNSPECIFIED
     Route: 065
     Dates: start: 20120329, end: 20120426

REACTIONS (4)
  - ANAEMIA [None]
  - LYMPHOPENIA [None]
  - HYPONATRAEMIA [None]
  - HEPATIC CIRRHOSIS [None]
